FAERS Safety Report 5455005-9 (Version None)
Quarter: 2007Q3

REPORT INFORMATION
  Report Type: 
  Country: None (occurrence: None)
  Receive Date: 20070913
  Receipt Date: 20070829
  Transmission Date: 20080115
  Serious: Yes (Other)
  Sender: FDA-Public Use
  Company Number: JPI-P-002140

PATIENT
  Sex: Female

DRUGS (2)
  1. XYREM [Suspect]
     Indication: NARCOLEPSY
     Dosage: 4.5 GM (2.25 GM, 2 IN 1 D), ORAL
     Route: 048
  2. MISPROSTOL (MISOPROSTOL) (TABLETS) [Concomitant]

REACTIONS (6)
  - ABDOMINAL PAIN [None]
  - FALL [None]
  - HEART RATE DECREASED [None]
  - HEART RATE INCREASED [None]
  - LOSS OF CONSCIOUSNESS [None]
  - TOOTH FRACTURE [None]
